FAERS Safety Report 6976783-3 (Version None)
Quarter: 2010Q3

REPORT INFORMATION
  Report Type: 
  Country: None (occurrence: None)
  Receive Date: 20100824
  Receipt Date: 20100721
  Transmission Date: 20110219
  Serious: No
  Sender: FDA-Public Use
  Company Number: 310368

PATIENT
  Age: 61 Year
  Sex: Male

DRUGS (3)
  1. VICTOZA [Suspect]
     Indication: TYPE 2 DIABETES MELLITUS
     Dosage: 0.6 MG, QD, SUBCUTANEOUS
     Route: 058
     Dates: start: 20100601
  2. ACTOS [Concomitant]
  3. SIMVASTATIN [Concomitant]

REACTIONS (3)
  - ERUCTATION [None]
  - IRRITABILITY [None]
  - NAUSEA [None]
